FAERS Safety Report 9921746 (Version 1)
Quarter: 2014Q1

REPORT INFORMATION
  Report Type: Spontaneous
  Country: US (occurrence: None)
  Receive Date: 20140221
  Receipt Date: 20140221
  Transmission Date: 20141002
  Serious: Yes (Death, Other)
  Sender: FDA-Public Use
  Company Number: None

PATIENT
  Age: 43 Year
  Sex: Female
  Weight: 72.58 kg

DRUGS (5)
  1. VIIBRYD [Suspect]
     Indication: DEPRESSION
     Route: 048
     Dates: start: 20130130, end: 20130207
  2. XANAX [Concomitant]
  3. BUSPAR [Concomitant]
  4. HIGH BLOOD PRESSURE MEDICINE [Concomitant]
  5. RESTORIL [Concomitant]

REACTIONS (8)
  - Insomnia [None]
  - Hypertension [None]
  - Burning sensation [None]
  - Completed suicide [None]
  - Chest pain [None]
  - Burning sensation [None]
  - Gastrooesophageal reflux disease [None]
  - Gun shot wound [None]
